FAERS Safety Report 16944045 (Version 1)
Quarter: 2019Q4

REPORT INFORMATION
  Report Type: Spontaneous
  Country: US (occurrence: US)
  Receive Date: 20191022
  Receipt Date: 20191022
  Transmission Date: 20200122
  Serious: Yes (Other)
  Sender: FDA-Public Use
  Company Number: US-TEVA-2019-US-1125515

PATIENT
  Sex: Male

DRUGS (2)
  1. PREDNISONE. [Suspect]
     Active Substance: PREDNISONE
     Indication: SCAR
     Dosage: 10 MILLIGRAM DAILY; 2 WEEKS OF 20 MG DAILY FOLLOWED BY 2 WEEKS OF 10 MG DAILY.
     Route: 065
  2. PREDNISONE. [Suspect]
     Active Substance: PREDNISONE
     Indication: INFLAMMATION
     Dosage: 20 MILLIGRAM DAILY; 2 WEEKS OF 20 MG DAILY FOLLOWED BY 2 WEEKS OF 10 MG DAILY.
     Route: 065

REACTIONS (1)
  - Adrenal insufficiency [Recovered/Resolved]
